FAERS Safety Report 7096473-9 (Version None)
Quarter: 2010Q4

REPORT INFORMATION
  Report Type: 
  Country: None (occurrence: None)
  Receive Date: 20101111
  Receipt Date: 20101007
  Transmission Date: 20110411
  Serious: Yes (Other)
  Sender: FDA-Public Use
  Company Number: US-AMGEN-KDL444667

PATIENT

DRUGS (1)
  1. PROCRIT [Suspect]
     Dosage: UNK UNK, UNK
     Route: 058

REACTIONS (1)
  - RENAL TRANSPLANT [None]
